FAERS Safety Report 20133275 (Version 8)
Quarter: 2024Q2

REPORT INFORMATION
  Report Type: Spontaneous
  Country: FR (occurrence: FR)
  Receive Date: 20211201
  Receipt Date: 20240422
  Transmission Date: 20240716
  Serious: Yes (Life-Threatening, Other)
  Sender: FDA-Public Use
  Company Number: FR-CELLTRION INC.-2021FR013842

PATIENT

DRUGS (21)
  1. RITUXIMAB [Suspect]
     Active Substance: RITUXIMAB
     Indication: Central nervous system lymphoma
     Dosage: 375 MG/M2, IN 21 DAYS (TRIPLE COMBINATION THERAPY ; R 2 I REGIMEN); 21-DAY CYCLES (INTERVAL 21 DAYS)
     Route: 065
  2. RITUXIMAB [Suspect]
     Active Substance: RITUXIMAB
     Dosage: 7875 MG/M2, EVERY 28 DAYS (375 MICROGRAM/SQ. METER)
     Route: 065
  3. RITUXIMAB [Suspect]
     Active Substance: RITUXIMAB
     Dosage: 375 MILLIGRAM/SQ. METER, CYCLE, TRIPLE COMBINATION THERAPY ; R 2 I REGIMEN
     Route: 065
  4. RITUXIMAB [Suspect]
     Active Substance: RITUXIMAB
     Dosage: 375 MG/M2 EVERY 21 DAYS (375 MG/M2, IN 21 DAYS, 375 MG/M2, CONTINUOUSLY (28-DAY CYCLES) (ADDITIONAL
     Route: 065
  5. RITUXIMAB [Suspect]
     Active Substance: RITUXIMAB
     Dosage: 7875 MG/M2 EVERY 28 DAYS (375 MICROGRAM/SQ. METER) (ADDITIONAL INFO: OFF LABEL USE)
     Route: 065
  6. RITUXIMAB [Suspect]
     Active Substance: RITUXIMAB
     Dosage: UNK
     Route: 065
  7. RITUXIMAB [Suspect]
     Active Substance: RITUXIMAB
     Dosage: 375 MG/M2, UNKNOWN
     Route: 065
  8. LENALIDOMIDE [Suspect]
     Active Substance: LENALIDOMIDE
     Indication: Central nervous system lymphoma
     Dosage: 25 MG, QD, D1-D10 (21-DAY CYCLES (PHARMACEUTICAL DOSE FORM: 5) (TRIPLE COMBINATION THERAPY R2I REGIM
     Route: 048
  9. LENALIDOMIDE [Suspect]
     Active Substance: LENALIDOMIDE
     Indication: Off label use
     Dosage: 525 MG, EVERY 28 DAYS (25 MILLIGRAM) (PHARMACEUTICAL DOSE FORM: UNKNOWN)
     Route: 048
  10. LENALIDOMIDE [Suspect]
     Active Substance: LENALIDOMIDE
     Dosage: UNK, QD, TRIPLE COMBINATION THERAPY ; R 2 I REGIMEN
     Route: 065
  11. LENALIDOMIDE [Suspect]
     Active Substance: LENALIDOMIDE
     Dosage: UNK
     Route: 065
  12. LENALIDOMIDE [Suspect]
     Active Substance: LENALIDOMIDE
     Dosage: 25 MG, DAILY (25 MG, QD, D1-D10) (PHARMACEUTICAL DOSAGE FORM: UNKNOWN)
     Route: 065
  13. LENALIDOMIDE [Suspect]
     Active Substance: LENALIDOMIDE
     Dosage: 20 MG 20 MG/D D1-D21 (PHARMACEUTICAL DOSAGE FORM: UNKNOWN)
     Route: 065
  14. LENALIDOMIDE [Suspect]
     Active Substance: LENALIDOMIDE
     Dosage: 525 MG, EVERY 28 DAYS (25 MILLIGRAM) (PHARMACEUTICAL DOSE FORM: UNKNOWN)
     Route: 065
  15. IBRUTINIB [Suspect]
     Active Substance: IBRUTINIB
     Indication: Central nervous system lymphoma
     Dosage: 11760MG EVERY 28 DAYS (560 MILLIGRAM)
     Route: 065
  16. IBRUTINIB [Suspect]
     Active Substance: IBRUTINIB
     Dosage: 560 MG, QD (TRIPLE COMBINATION THERAPY ; R 2 I REGIMEN; IBRUTINIB WAS ADMINISTRATED CONTINUOUSLY AT
     Route: 048
  17. IBRUTINIB [Suspect]
     Active Substance: IBRUTINIB
     Dosage: UNK
     Route: 065
  18. IBRUTINIB [Suspect]
     Active Substance: IBRUTINIB
     Dosage: 560 MILLIGRAM, QD, TRIPLE COMBINATION THERAPY ; R 2 I REGIMEN;...
     Route: 065
  19. IMBRUVICA [Suspect]
     Active Substance: IBRUTINIB
     Indication: Central nervous system lymphoma
     Dosage: UNK
     Route: 048
  20. IMBRUVICA [Suspect]
     Active Substance: IBRUTINIB
     Dosage: 11760 MG EVERY 28 DAYS (560 MILLIGRAM) (PHARMACEUTICAL DOSE FORM: UNKNOWN)
     Route: 048
  21. IMBRUVICA [Suspect]
     Active Substance: IBRUTINIB
     Dosage: 560 MG, DAILY (560 MG, QD, 560 MG/D, CONTINUOUSLY (28-DAY CYCLES))
     Route: 048

REACTIONS (6)
  - Cerebral aspergillosis [Unknown]
  - Arrhythmia [Unknown]
  - Disease progression [Unknown]
  - Off label use [Unknown]
  - Off label use [Unknown]
  - Product use in unapproved indication [Unknown]
